FAERS Safety Report 9126066 (Version 1)
Quarter: 2013Q1

REPORT INFORMATION
  Report Type: Spontaneous
  Country: US (occurrence: US)
  Receive Date: 20130117
  Receipt Date: 20130117
  Transmission Date: 20140127
  Serious: Yes (Hospitalization)
  Sender: FDA-Public Use
  Company Number: US-RB-048754-13

PATIENT
  Sex: Male

DRUGS (4)
  1. SUBOXONE FILM [Suspect]
     Indication: DRUG DEPENDENCE
     Dosage: SUBOXONE FILM
     Route: 064
     Dates: start: 201202, end: 201203
  2. SUBUTEX [Suspect]
     Indication: DRUG DEPENDENCE
     Route: 064
     Dates: start: 201203, end: 201211
  3. XANAX [Suspect]
     Indication: ANXIETY
     Route: 064
     Dates: start: 20120120, end: 201203
  4. CELEXA [Suspect]
     Indication: DEPRESSION
     Dosage: UNKNOWN DOSING DETAILS
     Route: 064
     Dates: start: 20120120, end: 201203

REACTIONS (2)
  - Jaundice neonatal [Recovered/Resolved]
  - Foetal exposure during pregnancy [Recovered/Resolved]
